FAERS Safety Report 9850690 (Version 1)
Quarter: 2013Q4

REPORT INFORMATION
  Report Type: Spontaneous
  Country: US (occurrence: None)
  Receive Date: 20131226
  Receipt Date: 20131226
  Transmission Date: 20140711
  Serious: Yes (Other)
  Sender: FDA-Public Use
  Company Number: PHEH2012US012727

PATIENT
  Age: 75 Year
  Sex: Female

DRUGS (5)
  1. AFINITOR (RAD) TABLET, 10MG [Suspect]
     Route: 048
     Dates: start: 20120307
  2. LOMOTIL (ATROPINE SULFATE, DIPHENOXYLATE HYDROCHLORIDE) [Concomitant]
  3. LORAZEPAM (LORAZEPAM) [Concomitant]
  4. RANITIDIN (RANITIDINE HYDROCHLORIDE) [Concomitant]
  5. TYLENOL (PARACETAMOL) [Concomitant]

REACTIONS (1)
  - Anaemia [None]
